FAERS Safety Report 9701936 (Version 1)
Quarter: 2013Q4

REPORT INFORMATION
  Report Type: Spontaneous
  Country: CH (occurrence: CH)
  Receive Date: 20131121
  Receipt Date: 20131121
  Transmission Date: 20140711
  Serious: Yes (Other)
  Sender: FDA-Public Use
  Company Number: CH-PFIZER INC-2013330663

PATIENT
  Sex: Female

DRUGS (12)
  1. XELJANZ [Suspect]
     Indication: RHEUMATOID ARTHRITIS
     Dosage: UNK
     Dates: start: 20130909
  2. ARAVA [Concomitant]
     Indication: RHEUMATOID ARTHRITIS
     Dosage: 100 MG, DAILY IN THE MORNING
     Dates: start: 200811
  3. SIMVASTATIN [Concomitant]
     Dosage: 40 MG, DAILY
     Dates: start: 20131118
  4. CARDIOASPIRINE [Concomitant]
     Dosage: 100 MG, DAILY IN THE MORNING
     Dates: start: 20131118
  5. GLUCOPHAGE [Concomitant]
     Dosage: 850 MG, DAILY IN THE MORNING
     Dates: start: 20131118
  6. SPIRICORT [Concomitant]
     Dosage: 7.5 MG, DAILY IN THE MORNING
     Dates: start: 20131118
  7. CALCIMAGON-D3 [Concomitant]
     Indication: OSTEOPENIA
     Dosage: 1 DF, 2X/DAY
  8. VALSARTAN [Concomitant]
     Dosage: 160/125MG
  9. AMLODIPINE [Concomitant]
     Dosage: 5 MG, UNK
  10. SINQUAN [Concomitant]
     Dosage: 10 MG, DAILY
  11. SYMBICORT [Concomitant]
     Dosage: 400/20
  12. ATENIL [Concomitant]
     Dosage: 20 MG, UNK

REACTIONS (1)
  - Angina pectoris [Unknown]
